FAERS Safety Report 18631839 (Version 3)
Quarter: 2021Q1

REPORT INFORMATION
  Report Type: Report from Study
  Country: None (occurrence: BR)
  Receive Date: 20201217
  Receipt Date: 20210312
  Transmission Date: 20210419
  Serious: Yes (Hospitalization, Disabling)
  Sender: FDA-Public Use
  Company Number: BR-ABBVIE-20K-020-3689651-00

PATIENT
  Age: 53 Year
  Sex: Female
  Weight: 60 kg

DRUGS (7)
  1. SKYRIZI [Suspect]
     Active Substance: RISANKIZUMAB-RZAA
     Route: 058
     Dates: start: 20210108
  2. CASTROL [Concomitant]
     Indication: BLOOD CHOLESTEROL ABNORMAL
  3. TRIGLYCERIDE [Concomitant]
     Indication: DIABETES MELLITUS
  4. CRESTOR [Concomitant]
     Active Substance: ROSUVASTATIN CALCIUM
     Indication: BLOOD CHOLESTEROL ABNORMAL
  5. SKYRIZI [Suspect]
     Active Substance: RISANKIZUMAB-RZAA
     Indication: PSORIASIS
     Dosage: WEAK 0
     Route: 058
     Dates: start: 20200806, end: 2020
  6. SKYRIZI [Suspect]
     Active Substance: RISANKIZUMAB-RZAA
     Dosage: WEAK 4
     Route: 058
  7. SKYRIZI [Suspect]
     Active Substance: RISANKIZUMAB-RZAA
     Route: 058

REACTIONS (15)
  - Pneumonia [Recovered/Resolved]
  - Asthenia [Recovering/Resolving]
  - White blood cell disorder [Recovering/Resolving]
  - Mouth injury [Recovering/Resolving]
  - Influenza [Unknown]
  - Malaise [Recovered/Resolved]
  - Oxygen saturation decreased [Recovered/Resolved]
  - Abdominal pain upper [Recovering/Resolving]
  - Lung disorder [Recovering/Resolving]
  - Oropharyngeal pain [Recovered/Resolved]
  - Psoriasis [Recovered/Resolved]
  - Confusional state [Unknown]
  - Diabetes mellitus [Recovering/Resolving]
  - COVID-19 [Recovered/Resolved]
  - Immunodeficiency [Not Recovered/Not Resolved]

NARRATIVE: CASE EVENT DATE: 202009
